FAERS Safety Report 17708667 (Version 1)
Quarter: 2020Q2

REPORT INFORMATION
  Report Type: Spontaneous
  Country: CH (occurrence: CH)
  Receive Date: 20200426
  Receipt Date: 20200426
  Transmission Date: 20200714
  Serious: Yes (Other)
  Sender: FDA-Public Use
  Company Number: NVSC2020CH106927

PATIENT
  Age: 33 Year
  Sex: Female

DRUGS (6)
  1. MYCOPHENOLATE MOFETIL. [Suspect]
     Active Substance: MYCOPHENOLATE MOFETIL
     Indication: MIXED CONNECTIVE TISSUE DISEASE
     Dosage: 2 G, QD
     Route: 065
     Dates: start: 200607
  2. INFLIXIMAB [Suspect]
     Active Substance: INFLIXIMAB
     Indication: MIXED CONNECTIVE TISSUE DISEASE
     Dosage: UNK UKN
     Route: 065
  3. AZATHIOPRINE. [Suspect]
     Active Substance: AZATHIOPRINE
     Indication: MIXED CONNECTIVE TISSUE DISEASE
     Dosage: UNK UKN
     Route: 065
  4. METHOTREXATE. [Suspect]
     Active Substance: METHOTREXATE
     Indication: MIXED CONNECTIVE TISSUE DISEASE
     Dosage: UNK UKN
     Route: 065
  5. PREDNISONE. [Suspect]
     Active Substance: PREDNISONE
     Indication: MIXED CONNECTIVE TISSUE DISEASE
     Dosage: 20 MG, QD
     Route: 065
  6. HYDROXYCHLOROQUINE [Suspect]
     Active Substance: HYDROXYCHLOROQUINE
     Indication: MIXED CONNECTIVE TISSUE DISEASE
     Dosage: UNK UKN
     Route: 065

REACTIONS (3)
  - Leukopenia [Unknown]
  - Product use in unapproved indication [Unknown]
  - Therapy non-responder [Unknown]
